FAERS Safety Report 6339934-X (Version None)
Quarter: 2009Q3

REPORT INFORMATION
  Report Type: 
  Country: None (occurrence: None)
  Receive Date: 20090903
  Receipt Date: 20090828
  Transmission Date: 20100115
  Serious: Yes (Hospitalization)
  Sender: FDA-Public Use
  Company Number: DE-ABBOTT-09P-062-0591063-00

PATIENT
  Weight: 50 kg

DRUGS (5)
  1. REDUCTIL 15MG [Suspect]
     Indication: DRUG USE FOR UNKNOWN INDICATION
     Dosage: 210 MG ONCE
     Route: 048
     Dates: start: 20090814, end: 20090814
  2. DICLOFENAC [Suspect]
     Indication: DRUG USE FOR UNKNOWN INDICATION
     Route: 048
  3. IBUPROFEN [Suspect]
     Indication: DRUG USE FOR UNKNOWN INDICATION
     Route: 048
  4. ALCOHOLIC FOOD [Suspect]
     Indication: DRUG USE FOR UNKNOWN INDICATION
     Route: 048
  5. APRANAX FORTE [Suspect]
     Indication: DRUG USE FOR UNKNOWN INDICATION
     Route: 048

REACTIONS (2)
  - SUICIDE ATTEMPT [None]
  - TACHYCARDIA [None]
